FAERS Safety Report 20757594 (Version 7)
Quarter: 2024Q1

REPORT INFORMATION
  Report Type: Spontaneous
  Country: US (occurrence: US)
  Receive Date: 20220427
  Receipt Date: 20240303
  Transmission Date: 20240409
  Serious: Yes (Other)
  Sender: FDA-Public Use
  Company Number: US-PFIZER INC-202101790604

PATIENT
  Age: 77 Year
  Sex: Female

DRUGS (2)
  1. XELJANZ XR [Suspect]
     Active Substance: TOFACITINIB CITRATE
     Dosage: 11 MG, DAILY
     Route: 048
  2. XELJANZ XR [Suspect]
     Active Substance: TOFACITINIB CITRATE
     Dosage: 11 MG TB24, TAKE 1 PARTIAL TABLET BY MOUTH DAILY
     Route: 048

REACTIONS (5)
  - Spinal fusion surgery [Unknown]
  - Arthritis [Unknown]
  - Visual impairment [Unknown]
  - Off label use [Unknown]
  - Wrong dose [Unknown]

NARRATIVE: CASE EVENT DATE: 20231101
